FAERS Safety Report 19581315 (Version 1)
Quarter: 2021Q3

REPORT INFORMATION
  Report Type: Spontaneous
  Country: US (occurrence: US)
  Receive Date: 20210719
  Receipt Date: 20210719
  Transmission Date: 20211014
  Serious: Yes (Disabling)
  Sender: FDA-Public Use
  Company Number: None

PATIENT
  Age: 20 Year
  Sex: Male

DRUGS (1)
  1. LINZESS [Suspect]
     Active Substance: LINACLOTIDE
     Indication: CONSTIPATION

REACTIONS (13)
  - Suicidal ideation [None]
  - Drug ineffective [None]
  - Anxiety [None]
  - Insomnia [None]
  - Dyspnoea [None]
  - Thinking abnormal [None]
  - Irritability [None]
  - Depression [None]
  - Constipation [None]
  - Mania [None]
  - Angina pectoris [None]
  - Nightmare [None]
  - Nausea [None]

NARRATIVE: CASE EVENT DATE: 20201003
